FAERS Safety Report 20640397 (Version 2)
Quarter: 2022Q2

REPORT INFORMATION
  Report Type: Spontaneous
  Country: US (occurrence: US)
  Receive Date: 20220327
  Receipt Date: 20220428
  Transmission Date: 20220721
  Serious: No
  Sender: FDA-Public Use
  Company Number: US-SA-SAC20220321000092

PATIENT
  Age: 13 Year
  Sex: Female

DRUGS (1)
  1. DUPIXENT [Suspect]
     Active Substance: DUPILUMAB
     Indication: Dermatitis atopic
     Dosage: 300 MG, QOW
     Route: 058
     Dates: start: 202203

REACTIONS (4)
  - Skin atrophy [Unknown]
  - Dermatitis atopic [Not Recovered/Not Resolved]
  - Product use issue [Unknown]
  - Therapeutic product effect variable [Unknown]

NARRATIVE: CASE EVENT DATE: 20220301
